FAERS Safety Report 21341203 (Version 2)
Quarter: 2022Q4

REPORT INFORMATION
  Report Type: Spontaneous
  Country: US (occurrence: US)
  Receive Date: 20220916
  Receipt Date: 20221017
  Transmission Date: 20230112
  Serious: No
  Sender: FDA-Public Use
  Company Number: US-TEVA-2022-US-2072075

PATIENT
  Age: 67 Year
  Sex: Male

DRUGS (2)
  1. QVAR REDIHALER [Suspect]
     Active Substance: BECLOMETHASONE DIPROPIONATE
     Indication: Product used for unknown indication
     Dosage: INHALATION - AEROSOL, STRENGTH: 80 MCG (2 PUFFS 2 TIMES A DAY)
     Route: 055
     Dates: start: 20220817, end: 20220825
  2. QVAR REDIHALER [Suspect]
     Active Substance: BECLOMETHASONE DIPROPIONATE
     Dosage: INHALATION - AEROSOL, STRENGTH: 80 MCG (2 PUFFS 2 TIMES A DAY)
     Route: 055
     Dates: start: 20220817, end: 20220825

REACTIONS (4)
  - Dyspnoea [Unknown]
  - Product residue present [Unknown]
  - Device malfunction [Unknown]
  - Device delivery system issue [Unknown]

NARRATIVE: CASE EVENT DATE: 20220801
